FAERS Safety Report 19007072 (Version 1)
Quarter: 2021Q1

REPORT INFORMATION
  Report Type: Spontaneous
  Country: US (occurrence: US)
  Receive Date: 20210314
  Receipt Date: 20210314
  Transmission Date: 20210420
  Serious: Yes (Hospitalization)
  Sender: FDA-Public Use
  Company Number: None

PATIENT
  Age: 41 Year
  Sex: Female
  Weight: 90 kg

DRUGS (8)
  1. HYDROXXIZINE [Concomitant]
  2. MULTIVITAMIN [Concomitant]
     Active Substance: VITAMINS
  3. NALTREXONE [Concomitant]
     Active Substance: NALTREXONE
  4. ZOLOFT [Concomitant]
     Active Substance: SERTRALINE HYDROCHLORIDE
  5. VIVITROL [Suspect]
     Active Substance: NALTREXONE
     Indication: DRUG DEPENDENCE
     Dosage: ?          QUANTITY:1 INJECTION(S);OTHER FREQUENCY:28 DAYS;?
     Route: 030
  6. MOBIC [Concomitant]
     Active Substance: MELOXICAM
  7. LIDOCAINE. [Concomitant]
     Active Substance: LIDOCAINE
  8. MELATONIN [Concomitant]
     Active Substance: MELATONIN

REACTIONS (12)
  - Joint stiffness [None]
  - Malaise [None]
  - Contusion [None]
  - Feeling hot [None]
  - Oedema [None]
  - Insomnia [None]
  - Cellulitis [None]
  - Pain [None]
  - Pruritus [None]
  - Exercise tolerance decreased [None]
  - Neuralgia [None]
  - Loss of personal independence in daily activities [None]

NARRATIVE: CASE EVENT DATE: 20200620
